FAERS Safety Report 18381372 (Version 1)
Quarter: 2020Q4

REPORT INFORMATION
  Report Type: Spontaneous
  Country: AU (occurrence: AU)
  Receive Date: 20201014
  Receipt Date: 20201014
  Transmission Date: 20210114
  Serious: Yes (Death)
  Sender: FDA-Public Use
  Company Number: AU-PFIZER INC-2020392880

PATIENT
  Age: 77 Year
  Sex: Female

DRUGS (5)
  1. IBUPROFEN SODIUM. [Suspect]
     Active Substance: IBUPROFEN SODIUM
     Indication: PAIN IN EXTREMITY
     Dosage: UNK
  2. CAPTOPRIL. [Concomitant]
     Active Substance: CAPTOPRIL
     Dosage: 37.5 MG, 2X/DAY
  3. FRUSEMIDE [FUROSEMIDE] [Concomitant]
     Active Substance: FUROSEMIDE
     Dosage: 360 MG, DAILY
  4. METOPROLOL. [Concomitant]
     Active Substance: METOPROLOL
     Dosage: 12.5 MG, 3X/DAY
  5. WARFARIN [Interacting]
     Active Substance: WARFARIN
     Dosage: 4 MG, DAILY

REACTIONS (2)
  - Drug interaction [Fatal]
  - Gastrointestinal haemorrhage [Fatal]
